FAERS Safety Report 12759899 (Version 5)
Quarter: 2017Q1

REPORT INFORMATION
  Report Type: Spontaneous
  Country: CH (occurrence: CH)
  Receive Date: 20160919
  Receipt Date: 20170111
  Transmission Date: 20170428
  Serious: Yes (Disabling, Other)
  Sender: FDA-Public Use
  Company Number: PHHY2016CH127476

PATIENT
  Age: 57 Year
  Sex: Male

DRUGS (5)
  1. ENALAPRIL HCT [Concomitant]
     Active Substance: ENALAPRIL\HYDROCHLOROTHIAZIDE
     Indication: PRODUCT USED FOR UNKNOWN INDICATION
     Dosage: 0.5 MORNING, 20/12.5 MG
     Route: 048
     Dates: start: 201108
  2. ASPIRIN CARDIO [Concomitant]
     Active Substance: ASPIRIN
     Indication: PRODUCT USED FOR UNKNOWN INDICATION
     Dosage: 100 MG, QD
     Route: 048
     Dates: start: 201108
  3. BOSULIF [Concomitant]
     Active Substance: BOSUTINIB MONOHYDRATE
     Indication: PRODUCT USED FOR UNKNOWN INDICATION
     Dosage: 100 MG, TID (NOON)
     Route: 065
  4. TASIGNA [Suspect]
     Active Substance: NILOTINIB
     Indication: CHRONIC MYELOID LEUKAEMIA
     Dosage: 300 MG, BID
     Route: 048
     Dates: start: 20110805, end: 20160921
  5. CRESTOR [Concomitant]
     Active Substance: ROSUVASTATIN CALCIUM
     Indication: PRODUCT USED FOR UNKNOWN INDICATION
     Dosage: 10 MG, QD
     Route: 048
     Dates: start: 201108

REACTIONS (15)
  - Arterial disorder [Unknown]
  - Osteochondrosis [Unknown]
  - Discomfort [Unknown]
  - Aortic arteriosclerosis [Unknown]
  - Intervertebral disc protrusion [Unknown]
  - Fatigue [Unknown]
  - Pulse absent [Unknown]
  - Hypercholesterolaemia [Unknown]
  - Peripheral artery stenosis [Unknown]
  - Gait disturbance [Not Recovered/Not Resolved]
  - Intermittent claudication [Not Recovered/Not Resolved]
  - Hypertonia [Unknown]
  - Pain [Unknown]
  - Peripheral arterial occlusive disease [Unknown]
  - Back pain [Unknown]

NARRATIVE: CASE EVENT DATE: 201601
